FAERS Safety Report 9732776 (Version 1)
Quarter: 2013Q4

REPORT INFORMATION
  Report Type: Report from Study
  Country: US (occurrence: US)
  Receive Date: 20131205
  Receipt Date: 20131205
  Transmission Date: 20140711
  Serious: Yes (Hospitalization)
  Sender: FDA-Public Use
  Company Number: US-PFIZER INC-2013334791

PATIENT
  Age: 61 Year
  Sex: Male
  Weight: 106 kg

DRUGS (8)
  1. NO SUBJECT DRUG [Suspect]
     Dosage: NO DOSE GIVEN
  2. FLUOROURACIL [Suspect]
     Indication: ADENOCARCINOMA OF COLON
     Dosage: 400 MG/M2, IVP ON DAY 1 FOLLOWED BY
     Route: 042
     Dates: start: 20120321, end: 20120321
  3. FLUOROURACIL [Suspect]
     Dosage: 2400 MG/M2, IV OVER 46-48 HOURS ON DAY 1
     Route: 042
     Dates: start: 20120321, end: 20120321
  4. PHENERGAN [Suspect]
  5. ZOFRAN [Suspect]
  6. LEUCOVORIN CALCIUM [Concomitant]
     Indication: ADENOCARCINOMA OF COLON
     Dosage: 400 MG/M2, OVER 2 HOURS ON DAY 1
     Route: 042
     Dates: start: 20120321, end: 20120321
  7. ELOXATIN [Concomitant]
     Indication: ADENOCARCINOMA OF COLON
     Dosage: 85 MG/M2, OVER 2 HOURS ON DAY 1
     Route: 042
     Dates: start: 20120321, end: 20120321
  8. CIPRO [Concomitant]

REACTIONS (1)
  - Non-alcoholic steatohepatitis [Not Recovered/Not Resolved]
